FAERS Safety Report 7178187-X (Version None)
Quarter: 2010Q4

REPORT INFORMATION
  Report Type: 
  Country: None (occurrence: None)
  Receive Date: 20101220
  Receipt Date: 20101215
  Transmission Date: 20110411
  Serious: Yes (Disabling, Other)
  Sender: FDA-Public Use
  Company Number: US-AMGEN-USASP2010005772

PATIENT

DRUGS (15)
  1. NPLATE [Suspect]
     Indication: IDIOPATHIC THROMBOCYTOPENIC PURPURA
     Dosage: 75 A?G, QWK
     Route: 058
     Dates: start: 20100727, end: 20100910
  2. NPLATE [Suspect]
     Dates: start: 20100727
  3. CORTICOSTEROIDS [Concomitant]
     Indication: IDIOPATHIC THROMBOCYTOPENIC PURPURA
     Dosage: UNK
     Dates: start: 20100614
  4. OXYGEN [Concomitant]
  5. PREDNISONE [Concomitant]
  6. SYNTHROID [Concomitant]
     Dosage: UNK
  7. RECLAST [Concomitant]
     Dosage: UNK
  8. METOPROLOL TARTRATE [Concomitant]
     Dosage: UNK
  9. CENTRUM SILVER                     /01292501/ [Concomitant]
  10. TUMS                               /00108001/ [Concomitant]
  11. CLOTRIMAZOLE AND BETAMETHASONE DIPROPIONATE [Concomitant]
  12. FOLBEE                             /01079901/ [Concomitant]
  13. ZOLPIDEM TARTRATE [Concomitant]
  14. MIRALAX [Concomitant]
  15. OMEPRAZOLE [Concomitant]

REACTIONS (9)
  - CARDIOMEGALY [None]
  - DIZZINESS [None]
  - HAEMATOCRIT DECREASED [None]
  - HAEMOGLOBIN INCREASED [None]
  - INTERSTITIAL LUNG DISEASE [None]
  - LUNG INFILTRATION [None]
  - OEDEMA PERIPHERAL [None]
  - PULMONARY FIBROSIS [None]
  - THROMBOCYTOPENIA [None]
